FAERS Safety Report 16884136 (Version 1)
Quarter: 2019Q4

REPORT INFORMATION
  Report Type: Spontaneous
  Country: US (occurrence: US)
  Receive Date: 20190808
  Receipt Date: 20190808
  Transmission Date: 20200122
  Serious: Yes (Other)
  Sender: FDA-Public Use
  Company Number: None

PATIENT
  Age: 31 Year
  Sex: Male

DRUGS (1)
  1. EQUALINE IBUPROFEN [Suspect]
     Active Substance: IBUPROFEN

REACTIONS (2)
  - Tooth fracture [None]
  - Pain [None]

NARRATIVE: CASE EVENT DATE: 20190101
